FAERS Safety Report 23867578 (Version 2)
Quarter: 2024Q2

REPORT INFORMATION
  Report Type: Spontaneous
  Country: NL (occurrence: NL)
  Receive Date: 20240517
  Receipt Date: 20240521
  Transmission Date: 20240717
  Serious: Yes (Other)
  Sender: FDA-Public Use
  Company Number: NL-ORG100014127-2022000478

PATIENT
  Age: 10 Year
  Sex: Female
  Weight: 40 kg

DRUGS (6)
  1. MITOTANE [Suspect]
     Active Substance: MITOTANE
     Indication: Adrenocortical carcinoma
     Dosage: AVERAGE DOSE OF 3.5 G PER DAY (2-7 GRAM PER DAY)
     Route: 048
  2. ETOPOSIDE [Concomitant]
     Active Substance: ETOPOSIDE
     Indication: Adrenocortical carcinoma
     Dates: start: 201606, end: 201612
  3. DOXORUBICIN [Concomitant]
     Active Substance: DOXORUBICIN
     Indication: Adrenocortical carcinoma
     Route: 042
     Dates: start: 201606, end: 2016
  4. CISPLATIN [Concomitant]
     Active Substance: CISPLATIN
     Indication: Adrenocortical carcinoma
     Route: 042
     Dates: start: 201606, end: 201612
  5. HYDROCORTISONE [Concomitant]
     Active Substance: HYDROCORTISONE
     Indication: Supplementation therapy
     Dates: start: 2016
  6. FLUDROCORTISONE [Concomitant]
     Active Substance: FLUDROCORTISONE
     Indication: Supplementation therapy
     Dates: start: 2016

REACTIONS (14)
  - Hypocalcaemia [Recovered/Resolved]
  - Central hypothyroidism [Recovered/Resolved]
  - Growth retardation [Recovered/Resolved]
  - Cognitive disorder [Recovering/Resolving]
  - Vaginal discharge [Recovered/Resolved]
  - Menstruation irregular [Not Recovered/Not Resolved]
  - Mood swings [Recovered/Resolved]
  - Neurodevelopmental disorder [Recovered/Resolved]
  - Memory impairment [Recovered/Resolved]
  - Nausea [Recovered/Resolved]
  - Fatigue [Recovered/Resolved]
  - Bradyphrenia [Recovered/Resolved]
  - Disturbance in attention [Recovered/Resolved with Sequelae]
  - Off label use [Recovered/Resolved]

NARRATIVE: CASE EVENT DATE: 20160101
